FAERS Safety Report 5331626-9 (Version None)
Quarter: 2007Q2

REPORT INFORMATION
  Report Type: 
  Country: None (occurrence: None)
  Receive Date: 20070522
  Receipt Date: 20070510
  Transmission Date: 20071010
  Serious: Yes (Other)
  Sender: FDA-Public Use
  Company Number: US-PFIZER INC-2007038791

PATIENT
  Sex: Male
  Weight: 120.45 kg

DRUGS (7)
  1. LIPITOR [Suspect]
     Dosage: DAILY DOSE:80MG
  2. ZETIA [Concomitant]
  3. PLAVIX [Concomitant]
  4. METOPROLOL SUCCINATE [Concomitant]
  5. ISOSORBIDE [Concomitant]
  6. ACETYLSALICYLIC ACID SRT [Concomitant]
  7. PREDNISONE TAB [Concomitant]

REACTIONS (6)
  - ARTHRALGIA [None]
  - BURNING SENSATION [None]
  - HYPOAESTHESIA [None]
  - INJURY [None]
  - MYOCARDIAL INFARCTION [None]
  - SENSORY LOSS [None]
